FAERS Safety Report 7744780-6 (Version None)
Quarter: 2011Q3

REPORT INFORMATION
  Report Type: 
  Country: None (occurrence: None)
  Receive Date: 20110912
  Receipt Date: 20110912
  Transmission Date: 20111222
  Serious: Yes (Other)
  Sender: FDA-Public Use
  Company Number: None

PATIENT
  Age: 35 Year
  Sex: Female
  Weight: 92.079 kg

DRUGS (1)
  1. HCG HOMEOPATHIC [Suspect]
     Dates: start: 20110215, end: 20110317

REACTIONS (12)
  - HUNGER [None]
  - HYPOAESTHESIA [None]
  - INSOMNIA [None]
  - FEAR [None]
  - ANXIETY [None]
  - OEDEMA PERIPHERAL [None]
  - JOINT SWELLING [None]
  - DEREALISATION [None]
  - DEPRESSION [None]
  - ECONOMIC PROBLEM [None]
  - SUICIDAL IDEATION [None]
  - TINNITUS [None]
